FAERS Safety Report 10093549 (Version 1)
Quarter: 2014Q2

REPORT INFORMATION
  Report Type: Spontaneous
  Country: US (occurrence: US)
  Receive Date: 20140421
  Receipt Date: 20140421
  Transmission Date: 20141212
  Serious: No
  Sender: FDA-Public Use
  Company Number: US-SANOFI-AVENTIS-2013SA078637

PATIENT
  Age: 61 Year
  Sex: Female

DRUGS (4)
  1. ALLEGRA [Suspect]
     Indication: HYPERSENSITIVITY
     Dosage: THERAPY STARTED SINCE TWO YEARS
     Route: 048
  2. HERBAL PREPARATION [Concomitant]
  3. MULTIVITAMINS [Concomitant]
  4. ASMANEX [Concomitant]

REACTIONS (2)
  - Aphonia [Unknown]
  - Extra dose administered [Unknown]
